FAERS Safety Report 7765742-9 (Version None)
Quarter: 2011Q3

REPORT INFORMATION
  Report Type: 
  Country: None (occurrence: None)
  Receive Date: 20110921
  Receipt Date: 20110912
  Transmission Date: 20111222
  Serious: Yes (Hospitalization, Other)
  Sender: FDA-Public Use
  Company Number: US-ASTRAZENECA-2010SE12069

PATIENT
  Age: 66 Year
  Sex: Male
  Weight: 79.4 kg

DRUGS (12)
  1. LISINOPRIL [Concomitant]
     Indication: HYPERTENSION
     Route: 048
  2. LOPRESSOR [Concomitant]
     Indication: HYPERTENSION
  3. SEROQUEL [Suspect]
     Indication: SLEEP DISORDER
     Route: 048
     Dates: start: 20090101
  4. LEVOTHYROXINE SODIUM [Concomitant]
     Indication: THYROID DISORDER
  5. ZOLOFT [Concomitant]
     Indication: DEPRESSION
  6. SEROQUEL [Suspect]
     Indication: BIPOLAR DISORDER
     Route: 048
     Dates: start: 20090101
  7. FLOMAX [Concomitant]
     Indication: PROSTATOMEGALY
  8. METFORMIN HCL [Concomitant]
     Indication: DIABETES MELLITUS
  9. ULTRAM [Concomitant]
     Indication: BACK PAIN
  10. PRAVASTATIN [Concomitant]
     Indication: HYPERCHOLESTEROLAEMIA
  11. PLAVIX [Concomitant]
     Indication: CAROTID ARTERY OCCLUSION
  12. PREDNIZONE [Concomitant]
     Indication: SLE ARTHRITIS

REACTIONS (6)
  - HIP FRACTURE [None]
  - CEREBROVASCULAR ACCIDENT [None]
  - FALL [None]
  - DEHYDRATION [None]
  - FEMUR FRACTURE [None]
  - ARTERIAL OCCLUSIVE DISEASE [None]
